FAERS Safety Report 25452536 (Version 3)
Quarter: 2025Q3

REPORT INFORMATION
  Report Type: Report from Study
  Country: CA (occurrence: CA)
  Receive Date: 20250618
  Receipt Date: 20250820
  Transmission Date: 20251021
  Serious: Yes (Other)
  Sender: JOHNSON AND JOHNSON
  Company Number: CA-JNJFOC-20250518787

PATIENT
  Age: 15 Year
  Sex: Female
  Weight: 85 kg

DRUGS (3)
  1. REMICADE [Suspect]
     Active Substance: INFLIXIMAB
     Indication: Crohn^s disease
     Route: 041
     Dates: start: 20190722
  2. REMICADE [Suspect]
     Active Substance: INFLIXIMAB
     Route: 041
  3. REMICADE [Suspect]
     Active Substance: INFLIXIMAB
     Route: 041
     Dates: start: 20190722

REACTIONS (4)
  - Crohn^s disease [Not Recovered/Not Resolved]
  - Drug level decreased [Not Recovered/Not Resolved]
  - Incorrect drug administration rate [Unknown]
  - Off label use [Unknown]

NARRATIVE: CASE EVENT DATE: 20250802
